FAERS Safety Report 6336596-2 (Version None)
Quarter: 2009Q3

REPORT INFORMATION
  Report Type: 
  Country: None (occurrence: None)
  Receive Date: 20090901
  Receipt Date: 20080901
  Transmission Date: 20100115
  Serious: Yes (Other)
  Sender: FDA-Public Use
  Company Number: BR-JNJFOC-20080900700

PATIENT
  Sex: Male
  Weight: 66.9 kg

DRUGS (1)
  1. CONCERTA [Suspect]
     Indication: ATTENTION DEFICIT/HYPERACTIVITY DISORDER
     Route: 065

REACTIONS (4)
  - DEREALISATION [None]
  - DRUG DOSE OMISSION [None]
  - HYPERHIDROSIS [None]
  - NAUSEA [None]
